FAERS Safety Report 25008526 (Version 1)
Quarter: 2025Q1

REPORT INFORMATION
  Report Type: Spontaneous
  Country: US (occurrence: US)
  Receive Date: 20250225
  Receipt Date: 20250225
  Transmission Date: 20250409
  Serious: Yes (Other)
  Sender: MYLAN
  Company Number: US-MYLANLABS-2025M1015657

PATIENT
  Age: 35 Year
  Sex: Male

DRUGS (10)
  1. ETOPOSIDE [Suspect]
     Active Substance: ETOPOSIDE
     Indication: Testicular germ cell tumour
  2. ETOPOSIDE [Suspect]
     Active Substance: ETOPOSIDE
     Indication: Testis cancer
  3. OXALIPLATIN [Suspect]
     Active Substance: OXALIPLATIN
     Indication: Testicular germ cell tumour
  4. OXALIPLATIN [Suspect]
     Active Substance: OXALIPLATIN
     Indication: Testis cancer
  5. BLEOMYCIN [Suspect]
     Active Substance: BLEOMYCIN SULFATE
     Indication: Testicular germ cell tumour
  6. BLEOMYCIN [Suspect]
     Active Substance: BLEOMYCIN SULFATE
     Indication: Testis cancer
  7. CISPLATIN [Suspect]
     Active Substance: CISPLATIN
     Indication: Testicular germ cell tumour
  8. CISPLATIN [Suspect]
     Active Substance: CISPLATIN
     Indication: Testis cancer
  9. CAPECITABINE [Suspect]
     Active Substance: CAPECITABINE
     Indication: Testicular germ cell tumour
  10. CAPECITABINE [Suspect]
     Active Substance: CAPECITABINE
     Indication: Testis cancer

REACTIONS (1)
  - Treatment failure [Unknown]
